FAERS Safety Report 11243337 (Version 1)
Quarter: 2015Q3

REPORT INFORMATION
  Report Type: Spontaneous
  Country: US (occurrence: None)
  Receive Date: 20150702
  Receipt Date: 20150702
  Transmission Date: 20151125
  Serious: Yes (Death, Hospitalization)
  Sender: FDA-Public Use
  Company Number: None

PATIENT
  Age: 3 Year
  Sex: Female
  Weight: 20.4 kg

DRUGS (1)
  1. VINCRISTINE SULFATE. [Suspect]
     Active Substance: VINCRISTINE SULFATE
     Dates: end: 20150618

REACTIONS (9)
  - Sepsis [None]
  - Cardiac arrest [None]
  - Colitis [None]
  - Pyrexia [None]
  - Tachycardia [None]
  - Lactic acidosis [None]
  - Troponin increased [None]
  - Abdominal pain [None]
  - Ascites [None]

NARRATIVE: CASE EVENT DATE: 20150606
